FAERS Safety Report 7481804-8 (Version None)
Quarter: 2011Q2

REPORT INFORMATION
  Report Type: 
  Country: None (occurrence: None)
  Receive Date: 20110516
  Receipt Date: 20110502
  Transmission Date: 20111010
  Serious: Yes (Hospitalization, Other)
  Sender: FDA-Public Use
  Company Number: US-ELI_LILLY_AND_COMPANY-US201010004669

PATIENT
  Sex: Male

DRUGS (7)
  1. ZOLOFT [Concomitant]
  2. CALCIUM [Concomitant]
  3. FORTEO [Suspect]
     Dosage: 20 UG, DAILY (1/D)
  4. FORTEO [Suspect]
     Dosage: 20 UG, DAILY (1/D)
     Dates: end: 20110411
  5. FORTEO [Suspect]
     Indication: OSTEOPOROSIS
     Dosage: 20 UG, DAILY (1/D)
     Dates: start: 20101001
  6. ANTIBIOTICS [Concomitant]
  7. PROVIGIL [Concomitant]

REACTIONS (14)
  - MUSCULAR WEAKNESS [None]
  - FEAR OF FALLING [None]
  - CONSTIPATION [None]
  - BACK PAIN [None]
  - MUSCLE RIGIDITY [None]
  - FALL [None]
  - BALANCE DISORDER [None]
  - HIP FRACTURE [None]
  - BONE PAIN [None]
  - HYPOTENSION [None]
  - MUSCULOSKELETAL PAIN [None]
  - JOINT INJURY [None]
  - HEART RATE DECREASED [None]
  - ASTHENIA [None]
